FAERS Safety Report 6990702-5 (Version None)
Quarter: 2010Q3

REPORT INFORMATION
  Report Type: 
  Country: None (occurrence: None)
  Receive Date: 20100916
  Receipt Date: 20100729
  Transmission Date: 20110219
  Serious: Yes (Other)
  Sender: FDA-Public Use
  Company Number: US-PFIZER INC-2009264695

PATIENT
  Sex: Female
  Weight: 87.5 kg

DRUGS (4)
  1. PREGABALIN [Suspect]
     Indication: PROCEDURAL PAIN
     Dosage: UNK
     Route: 048
     Dates: start: 20090903, end: 20090904
  2. ALEVE (CAPLET) [Concomitant]
  3. ATROPINE [Concomitant]
  4. DILAUDID [Concomitant]

REACTIONS (1)
  - ATRIOVENTRICULAR BLOCK COMPLETE [None]
